FAERS Safety Report 4610199-X (Version None)
Quarter: 2005Q1

REPORT INFORMATION
  Report Type: 
  Country: None (occurrence: None)
  Receive Date: 20050301
  Receipt Date: 20041115
  Transmission Date: 20050727
  Serious: No
  Sender: FDA-Public Use
  Company Number: WAES 0411USA02510

PATIENT
  Age: 75 Year
  Sex: Female

DRUGS (3)
  1. ZETIA [Suspect]
     Indication: BLOOD CHOLESTEROL INCREASED
     Dosage: 10 MG DAILY PO
     Route: 048
     Dates: start: 20041011, end: 20041115
  2. AVAPRO [Concomitant]
  3. PREMARIN [Concomitant]

REACTIONS (2)
  - BACK PAIN [None]
  - FATIGUE [None]
